FAERS Safety Report 23296695 (Version 1)
Quarter: 2023Q4

REPORT INFORMATION
  Report Type: Report from Study
  Country: US (occurrence: US)
  Receive Date: 20231214
  Receipt Date: 20231214
  Transmission Date: 20240109
  Serious: Yes (Hospitalization)
  Sender: FDA-Public Use
  Company Number: US-ARGENX-2023-ARGX-US003993AA

PATIENT

DRUGS (1)
  1. VYVGART [Suspect]
     Active Substance: EFGARTIGIMOD ALFA-FCAB
     Indication: Myasthenia gravis
     Dosage: UNK
     Route: 042
     Dates: start: 20230406

REACTIONS (6)
  - Chest pain [Recovering/Resolving]
  - Influenza like illness [Not Recovered/Not Resolved]
  - Product dose omission issue [Unknown]
  - Symptom recurrence [Unknown]
  - Treatment delayed [Recovered/Resolved]
  - Dysphagia [Recovering/Resolving]
